FAERS Safety Report 7994254-2 (Version None)
Quarter: 2011Q4

REPORT INFORMATION
  Report Type: 
  Country: None (occurrence: None)
  Receive Date: 20111220
  Receipt Date: 20111209
  Transmission Date: 20120403
  Serious: Yes (Other)
  Sender: FDA-Public Use
  Company Number: TR-JNJFOC-20111204182

PATIENT
  Age: 30 Year
  Sex: Female

DRUGS (3)
  1. RISPERIDONE [Suspect]
     Indication: BIPOLAR DISORDER
     Route: 048
  2. RISPERDAL [Suspect]
     Indication: BIPOLAR DISORDER
     Route: 048
  3. RISPERDAL [Suspect]
     Route: 048

REACTIONS (3)
  - CONSTIPATION [None]
  - ABNORMAL WEIGHT GAIN [None]
  - HYPOTHYROIDISM [None]
